FAERS Safety Report 17741499 (Version 1)
Quarter: 2020Q2

REPORT INFORMATION
  Report Type: Spontaneous
  Country: NL (occurrence: NL)
  Receive Date: 20200504
  Receipt Date: 20200504
  Transmission Date: 20200714
  Serious: Yes (Other)
  Sender: FDA-Public Use
  Company Number: NL-PFIZER INC-2020171580

PATIENT
  Sex: Male
  Weight: 76 kg

DRUGS (2)
  1. AZITHROMYCIN/TEVA [Concomitant]
     Active Substance: AZITHROMYCIN
     Indication: ARTHROPOD BITE
     Dosage: 1 DF, 1X/DAY, 1 BOTTLE
     Route: 048
  2. AZITHROMYCIN ANHYDROUS. [Suspect]
     Active Substance: AZITHROMYCIN ANHYDROUS
     Indication: ARTHROPOD BITE
     Dosage: 1 DF, 1X/DAY, 1 BOTTLE
     Route: 048

REACTIONS (8)
  - Vomiting [Recovered/Resolved]
  - Diarrhoea haemorrhagic [Recovered/Resolved]
  - Gastric hypermotility [Recovered/Resolved]
  - Poor quality product administered [Unknown]
  - Diarrhoea [Recovered/Resolved]
  - Product taste abnormal [Unknown]
  - Product use in unapproved indication [Unknown]
  - Off label use [Unknown]
